FAERS Safety Report 4945106-3 (Version None)
Quarter: 2006Q1

REPORT INFORMATION
  Report Type: 
  Country: None (occurrence: None)
  Receive Date: 20060314
  Receipt Date: 20060314
  Transmission Date: 20060701
  Serious: Yes (Hospitalization)
  Sender: FDA-Public Use
  Company Number: None

PATIENT
  Sex: Female
  Weight: 55.3388 kg

DRUGS (1)
  1. TOPAMAX [Suspect]
     Indication: MIGRAINE
     Dosage: 100 MG QHS PO
     Route: 048
     Dates: start: 20051005, end: 20060311

REACTIONS (4)
  - NAUSEA [None]
  - NEPHROLITHIASIS [None]
  - RENAL COLIC [None]
  - VOMITING [None]
